FAERS Safety Report 4288909-3 (Version None)
Quarter: 2004Q1

REPORT INFORMATION
  Report Type: 
  Country: None (occurrence: None)
  Receive Date: 20040209
  Receipt Date: 20040209
  Transmission Date: 20041129
  Serious: No
  Sender: FDA-Public Use
  Company Number: None

PATIENT
  Age: 79 Year
  Sex: Male
  Weight: 95.2554 kg

DRUGS (1)
  1. TIMOLOL MALEATE [Suspect]
     Indication: GLAUCOMA
     Dosage: 1 DROP/E 1 X NIGHTL  AURICULAR (OT
     Route: 001
     Dates: start: 19990101, end: 20040205

REACTIONS (6)
  - EYE BURNS [None]
  - EYE IRRITATION [None]
  - EYE REDNESS [None]
  - INSOMNIA [None]
  - PAPILLOEDEMA [None]
  - PHARMACEUTICAL PRODUCT COMPLAINT [None]
